FAERS Safety Report 5292191-8 (Version None)
Quarter: 2007Q2

REPORT INFORMATION
  Report Type: 
  Country: None (occurrence: None)
  Receive Date: 20070410
  Receipt Date: 20070405
  Transmission Date: 20071010
  Serious: Yes (Hospitalization, Other)
  Sender: FDA-Public Use
  Company Number: US-BRISTOL-MYERS SQUIBB COMPANY-13739560

PATIENT
  Age: 79 Year
  Sex: Male

DRUGS (2)
  1. CISPLATIN [Suspect]
     Indication: MESOTHELIOMA
     Dates: start: 20070220
  2. ALIMTA [Suspect]
     Indication: MESOTHELIOMA
     Dates: start: 20070220

REACTIONS (3)
  - BLOOD MAGNESIUM ABNORMAL [None]
  - DEEP VEIN THROMBOSIS [None]
  - HYPOTENSION [None]
